FAERS Safety Report 8316278-8 (Version None)
Quarter: 2012Q2

REPORT INFORMATION
  Report Type: 
  Country: None (occurrence: None)
  Receive Date: 20120427
  Receipt Date: 20120423
  Transmission Date: 20120825
  Serious: No
  Sender: FDA-Public Use
  Company Number: US-PFIZER INC-2012091517

PATIENT
  Sex: Male

DRUGS (8)
  1. ULTRAM [Concomitant]
     Dosage: 50 MG 1 TABLET 3 TIMES DAILY
     Route: 048
  2. CRESTOR [Concomitant]
     Dosage: 40 MG, 1 TABLET AT NIGHT
     Route: 048
  3. IBUPROFEN (ADVIL) [Concomitant]
     Dosage: 800 MG 1 TABLET 2 TIMES DAILY
     Route: 048
  4. WELCHOL [Concomitant]
     Dosage: 625 MG, 2 TABLETS 2 TIMES DAILY WITH MEALS
     Route: 048
  5. CYMBALTA [Concomitant]
     Dosage: 60 MG 1 CAPSULE 2 TIMES DAILY
     Route: 048
  6. MOTRIN [Concomitant]
     Dosage: 800 MG 1 TABLET 2 TIMES DAILY
     Route: 048
  7. NEURONTIN [Suspect]
     Dosage: 300 MG, 3X/DAY
     Route: 048
  8. ELAVIL [Concomitant]
     Dosage: 50 MG, 1 TABLET AT NIGHT
     Route: 048

REACTIONS (6)
  - BLOOD CHOLESTEROL INCREASED [None]
  - LIBIDO DECREASED [None]
  - BACK PAIN [None]
  - NECK PAIN [None]
  - INSOMNIA [None]
  - ERECTILE DYSFUNCTION [None]
